FAERS Safety Report 6250376-8 (Version None)
Quarter: 2009Q2

REPORT INFORMATION
  Report Type: 
  Country: None (occurrence: None)
  Receive Date: 20090630
  Receipt Date: 20090617
  Transmission Date: 20091009
  Serious: Yes (Hospitalization)
  Sender: FDA-Public Use
  Company Number: GB-TEVA-199038ISR

PATIENT
  Age: 12 Year
  Sex: Male

DRUGS (3)
  1. METHOTREXATE [Suspect]
     Indication: JUVENILE ARTHRITIS
     Route: 048
  2. METHOTREXATE [Suspect]
     Route: 058
     Dates: start: 19980818
  3. METHOTREXATE [Suspect]
     Route: 058

REACTIONS (9)
  - ARTHRALGIA [None]
  - CONDITION AGGRAVATED [None]
  - EPISTAXIS [None]
  - JUVENILE ARTHRITIS [None]
  - PHOTOPHOBIA [None]
  - PYREXIA [None]
  - RASH [None]
  - SPLENOMEGALY [None]
  - VOMITING [None]
